FAERS Safety Report 24785604 (Version 5)
Quarter: 2025Q1

REPORT INFORMATION
  Report Type: Report from Study
  Country: IT (occurrence: IT)
  Receive Date: 20241228
  Receipt Date: 20250319
  Transmission Date: 20250409
  Serious: Yes (Other)
  Sender: ORCHARD THERAPEUTICS EUROPE
  Company Number: IT-Orchard Therapeutics-2167928

PATIENT
  Age: 18 Month
  Sex: Male
  Weight: 7.5 kg

DRUGS (12)
  1. LENMELDY [Suspect]
     Active Substance: ATIDARSAGENE AUTOTEMCEL
     Indication: Metachromatic leukodystrophy
     Dates: start: 20241004, end: 20241004
  2. AMOXICILLIN AND CLAVULANATE POTASSIUM [Concomitant]
     Active Substance: AMOXICILLIN\CLAVULANATE POTASSIUM
     Dates: start: 20241024
  3. VANCOMYCIN [Concomitant]
     Active Substance: VANCOMYCIN
     Dates: start: 20241021, end: 20241024
  4. PIPERACILLIN AND TAZOBACTAM [Concomitant]
     Active Substance: PIPERACILLIN SODIUM\TAZOBACTAM SODIUM
     Dates: start: 20241010, end: 20241016
  5. ACETAMINOPHEN [Concomitant]
     Active Substance: ACETAMINOPHEN
  6. MYCAMINE [Concomitant]
     Active Substance: MICAFUNGIN SODIUM
     Dates: start: 20241004, end: 20241013
  7. FLUCONAZOLE [Concomitant]
     Active Substance: FLUCONAZOLE
     Dates: start: 20241106
  8. MEROPENEM [Concomitant]
     Active Substance: MEROPENEM
     Dates: start: 20241024, end: 20241027
  9. ISAVUCONAZOLE [Concomitant]
     Active Substance: ISAVUCONAZOLE
     Dates: start: 20241029, end: 20241029
  10. G-CSF - Granulocyte colony stimulating factor [Concomitant]
     Dates: start: 20241022, end: 20241105
  11. HYDROCORTISONE ACETATE [Concomitant]
     Active Substance: HYDROCORTISONE ACETATE
  12. CASPOFUNGIN ACETATE [Concomitant]
     Active Substance: CASPOFUNGIN ACETATE
     Dates: start: 20241015, end: 20241108

REACTIONS (1)
  - Drug ineffective [Not Recovered/Not Resolved]

NARRATIVE: CASE EVENT DATE: 20241107
